FAERS Safety Report 10241787 (Version 1)
Quarter: 2014Q2

REPORT INFORMATION
  Report Type: Report from Study
  Country: US (occurrence: US)
  Receive Date: 20140617
  Receipt Date: 20140617
  Transmission Date: 20141212
  Serious: Yes (Other)
  Sender: FDA-Public Use
  Company Number: US-SA-2014SA076173

PATIENT
  Sex: Female

DRUGS (3)
  1. LANTUS SOLOSTAR [Suspect]
     Indication: TYPE 2 DIABETES MELLITUS
     Dosage: DOSE: 75U PM, 60U AM
     Route: 065
  2. LANTUS SOLOSTAR [Suspect]
     Indication: TYPE 2 DIABETES MELLITUS
     Dosage: DOSE:70 UNIT(S)
     Route: 065
  3. SOLOSTAR [Concomitant]
     Indication: DEVICE THERAPY

REACTIONS (9)
  - Blindness unilateral [Unknown]
  - Drug dose omission [Unknown]
  - Retinal detachment [Unknown]
  - Toe amputation [Unknown]
  - Wound infection [Unknown]
  - Limb injury [Unknown]
  - Blood glucose increased [Unknown]
  - Blood glucose decreased [Unknown]
  - Drug administration error [Unknown]
